FAERS Safety Report 4317403-6 (Version None)
Quarter: 2004Q1

REPORT INFORMATION
  Report Type: 
  Country: None (occurrence: None)
  Receive Date: 20040312
  Receipt Date: 20040224
  Transmission Date: 20041129
  Serious: Yes (Hospitalization, Other)
  Sender: FDA-Public Use
  Company Number: A-CH2004-05083

PATIENT
  Age: 73 Year
  Sex: Male

DRUGS (7)
  1. TRACLEER [Suspect]
     Indication: PULMONARY HYPERTENSION
     Dosage: 62.5 MG, BID, ORAL
     Route: 048
     Dates: start: 20020904
  2. ALDACTONE [Concomitant]
  3. LASIX [Concomitant]
  4. ATENOLOL [Concomitant]
  5. BISOPROLOL FUMARATE [Concomitant]
  6. OMEPRAZOLE [Concomitant]
  7. PREVISCAN (FLUINDIONE) [Concomitant]

REACTIONS (8)
  - ANAEMIA [None]
  - DYSPNOEA [None]
  - EPISTAXIS [None]
  - GAMMA-GLUTAMYLTRANSFERASE INCREASED [None]
  - GASTRIC ULCER [None]
  - HAEMATOCHEZIA [None]
  - RENAL FAILURE [None]
  - RIGHT VENTRICULAR FAILURE [None]
